FAERS Safety Report 8732081 (Version 3)
Quarter: 2013Q2

REPORT INFORMATION
  Report Type: Spontaneous
  Country: US (occurrence: US)
  Receive Date: 20120820
  Receipt Date: 20130528
  Transmission Date: 20140414
  Serious: Yes (Other)
  Sender: FDA-Public Use
  Company Number: US-ASTRAZENECA-2012SE57071

PATIENT
  Age: 76 Year
  Sex: Female

DRUGS (2)
  1. NEXIUM [Suspect]
     Route: 048
  2. TOPROL XL [Suspect]
     Route: 048

REACTIONS (8)
  - Cerebrovascular accident [Unknown]
  - Hemiplegia [Unknown]
  - Hypokinesia [Unknown]
  - Limb injury [Unknown]
  - Cardiac disorder [Unknown]
  - Asthma [Unknown]
  - Gout [Unknown]
  - Abdominal discomfort [Unknown]
